FAERS Safety Report 14094113 (Version 1)
Quarter: 2017Q4

REPORT INFORMATION
  Report Type: Spontaneous
  Country: US (occurrence: US)
  Receive Date: 20171016
  Receipt Date: 20171016
  Transmission Date: 20180321
  Serious: Yes (Other)
  Sender: FDA-Public Use
  Company Number: US-FERRINGPH-2017FE04963

PATIENT

DRUGS (1)
  1. CHORIONIC GONADOTROPHIN [Suspect]
     Active Substance: CHORIOGONADOTROPIN ALFA
     Indication: WEIGHT DECREASED
     Dosage: UNKNOWN
     Route: 065

REACTIONS (2)
  - Product use in unapproved indication [Unknown]
  - Mycobacterium fortuitum infection [Recovering/Resolving]
